FAERS Safety Report 7366831-3 (Version None)
Quarter: 2011Q1

REPORT INFORMATION
  Report Type: 
  Country: None (occurrence: None)
  Receive Date: 20110317
  Receipt Date: 20110317
  Transmission Date: 20110831
  Serious: Yes (Other)
  Sender: FDA-Public Use
  Company Number: None

PATIENT
  Sex: Female
  Weight: 40.8237 kg

DRUGS (2)
  1. SEROQUEL [Suspect]
     Indication: DEPRESSION
     Dates: start: 20101209, end: 20101209
  2. SEROQUEL [Suspect]
     Indication: POST-TRAUMATIC STRESS DISORDER
     Dates: start: 20101209, end: 20101209

REACTIONS (6)
  - PALPITATIONS [None]
  - NAUSEA [None]
  - PYREXIA [None]
  - DIZZINESS [None]
  - TACHYCARDIA [None]
  - HYPERHIDROSIS [None]
